FAERS Safety Report 9500424 (Version 1)
Quarter: 2013Q3

REPORT INFORMATION
  Report Type: Spontaneous
  Country: ES (occurrence: ES)
  Receive Date: 20130905
  Receipt Date: 20130905
  Transmission Date: 20140515
  Serious: Yes (Hospitalization)
  Sender: FDA-Public Use
  Company Number: ES-MYLANLABS-2013S1019144

PATIENT
  Age: 78 Year
  Sex: Female

DRUGS (2)
  1. CLINDAMYCIN [Suspect]
     Indication: HIP ARTHROPLASTY
     Route: 065
  2. LEVOFLOXACIN [Suspect]
     Indication: HIP ARTHROPLASTY
     Route: 065

REACTIONS (1)
  - Acute generalised exanthematous pustulosis [Recovering/Resolving]
